FAERS Safety Report 18761312 (Version 1)
Quarter: 2021Q1

REPORT INFORMATION
  Report Type: Spontaneous
  Country: AT (occurrence: AT)
  Receive Date: 20210120
  Receipt Date: 20210120
  Transmission Date: 20210419
  Serious: Yes (Other)
  Sender: FDA-Public Use
  Company Number: AT-ACCORD-214771

PATIENT
  Age: 77 Year
  Sex: Male

DRUGS (3)
  1. CAPECITABINE. [Suspect]
     Active Substance: CAPECITABINE
     Indication: CHEMOTHERAPY
     Dosage: 825 MG/M2 KOF, RADIOCHEMOTHERAPY WITH CAPECITABINE 2X PER DAY
     Dates: start: 20201007, end: 20201113
  2. MITOMYCIN. [Suspect]
     Active Substance: MITOMYCIN
     Indication: CHEMOTHERAPY
     Dosage: 10 MG/M2 KOF, RADIOCHEMOTHERAPY WITH MITOMYCIN C IN 2 CYCLES
     Dates: start: 20201007, end: 20201113
  3. DUTAGLANDIN COMP. 0,5 MG/0,4 MG [Suspect]
     Active Substance: DUTASTERIDE\TAMSULOSIN HYDROCHLORIDE
     Indication: BENIGN PROSTATIC HYPERPLASIA
     Dosage: DAILY ONE TABLET IN THE MORNING
     Dates: start: 202004

REACTIONS (7)
  - Thrombocytopenia [Recovered/Resolved]
  - Defaecation urgency [Unknown]
  - Nocturia [Not Recovered/Not Resolved]
  - Leukopenia [Unknown]
  - Micturition urgency [Not Recovered/Not Resolved]
  - Dyschezia [Unknown]
  - Therapeutic product effect incomplete [Unknown]
